FAERS Safety Report 14752939 (Version 1)
Quarter: 2018Q2

REPORT INFORMATION
  Report Type: Spontaneous
  Country: DE (occurrence: DE)
  Receive Date: 20180412
  Receipt Date: 20180412
  Transmission Date: 20180711
  Serious: Yes (Death, Hospitalization)
  Sender: FDA-Public Use
  Company Number: DE-ROCHE-2105658

PATIENT
  Sex: Male

DRUGS (7)
  1. RITUXIMAB. [Suspect]
     Active Substance: RITUXIMAB
     Indication: B-CELL LYMPHOMA
     Dosage: LAST DOSE PRIOR TO SAE: 10/MAY/2016
     Route: 042
     Dates: start: 20160425
  2. PEGFILGRASTIM [Suspect]
     Active Substance: PEGFILGRASTIM
     Indication: B-CELL LYMPHOMA
     Dosage: DAY 4 EACH CYCLE (1 IN 1 CYCLICAL)
     Route: 058
     Dates: start: 20160429
  3. VINCRISTINE [Suspect]
     Active Substance: VINCRISTINE
     Indication: B-CELL LYMPHOMA
     Route: 042
     Dates: start: 20160426
  4. DOXORUBICIN [Suspect]
     Active Substance: DOXORUBICIN
     Indication: B-CELL LYMPHOMA
     Dosage: LAST CYCLE PRIOR TO SAE: 10/MAY/2016
     Route: 042
     Dates: start: 20160426
  5. PREDNISOLONE. [Suspect]
     Active Substance: PREDNISOLONE
     Indication: B-CELL LYMPHOMA
     Dosage: DAY 1-5 BI WEEKLY; LAST CYCLE PRIOR TO SAE: 10/MAY/2016
     Route: 048
     Dates: start: 20160426
  6. FUROSEMIDE. [Concomitant]
     Active Substance: FUROSEMIDE
     Indication: OEDEMA
     Dosage: UNK, LAST CYCLE PRIOR TO SAE: 10/MAY/2016
     Route: 065
  7. CYCLOPHOSPHAMIDE. [Suspect]
     Active Substance: CYCLOPHOSPHAMIDE
     Indication: B-CELL LYMPHOMA
     Dosage: LAST CYCLE PRIOR TO SAE: 10/MAY/2016
     Route: 042
     Dates: start: 20160426

REACTIONS (2)
  - Arrhythmia [Unknown]
  - Pneumonitis [Fatal]

NARRATIVE: CASE EVENT DATE: 20160523
